FAERS Safety Report 19583585 (Version 1)
Quarter: 2021Q3

REPORT INFORMATION
  Report Type: Spontaneous
  Country: US (occurrence: US)
  Receive Date: 20210720
  Receipt Date: 20210720
  Transmission Date: 20211014
  Serious: No
  Sender: FDA-Public Use
  Company Number: None

PATIENT
  Age: 84 Year
  Sex: Male

DRUGS (1)
  1. PRAVASTATIN (PRAVASTATIN NA 10MG TAB) [Suspect]
     Active Substance: PRAVASTATIN SODIUM
     Dosage: ?          OTHER FREQUENCY:PM;?
     Route: 048
     Dates: start: 20190503, end: 20190913

REACTIONS (1)
  - Abdominal pain [None]

NARRATIVE: CASE EVENT DATE: 20191011
